FAERS Safety Report 15498007 (Version 1)
Quarter: 2018Q4

REPORT INFORMATION
  Report Type: Spontaneous
  Country: US (occurrence: US)
  Receive Date: 20181014
  Receipt Date: 20181014
  Transmission Date: 20190205
  Serious: Yes (Disabling)
  Sender: FDA-Public Use
  Company Number: None

PATIENT
  Age: 52 Year
  Sex: Female

DRUGS (1)
  1. RECLAST [Suspect]
     Active Substance: ZOLEDRONIC ACID
     Indication: OSTEOPOROSIS
     Dosage: ?          OTHER FREQUENCY:ONCE A YEAR;?
     Route: 042
     Dates: start: 20180820, end: 20180820

REACTIONS (5)
  - Gait disturbance [None]
  - Osteoarthritis [None]
  - Asthma [None]
  - Headache [None]
  - Pruritus [None]

NARRATIVE: CASE EVENT DATE: 20180821
